FAERS Safety Report 4719329-2 (Version None)
Quarter: 2005Q3

REPORT INFORMATION
  Report Type: 
  Country: None (occurrence: None)
  Receive Date: 20050719
  Receipt Date: 20050707
  Transmission Date: 20060218
  Serious: Yes (Life-Threatening, Hospitalization, Other)
  Sender: FDA-Public Use
  Company Number: HQWYE054808JUL05

PATIENT
  Age: 61 Year
  Sex: Female

DRUGS (12)
  1. CORDARONE [Suspect]
     Indication: ATRIAL FIBRILLATION
     Dosage: 200 MG TABLET/DOSE REGIMEN NOT PROVIDED; ORAL
     Route: 048
     Dates: start: 20050424
  2. CORDARONE [Suspect]
     Indication: ATRIAL FLUTTER
     Dosage: 200 MG TABLET/DOSE REGIMEN NOT PROVIDED; ORAL
     Route: 048
     Dates: start: 20050424
  3. DIGOXIN [Suspect]
     Indication: ATRIAL FIBRILLATION
     Dosage: 0.125 MG TABLET/DOSE REGIMEN NOT PROVIDED; ORAL
     Route: 048
     Dates: start: 20050422
  4. DIGOXIN [Suspect]
     Indication: ATRIAL FLUTTER
     Dosage: 0.125 MG TABLET/DOSE REGIMEN NOT PROVIDED; ORAL
     Route: 048
     Dates: start: 20050422
  5. CARVEDILOL [Suspect]
     Dosage: ORAL
     Route: 048
     Dates: start: 20050506, end: 20050507
  6. SECTRAL [Suspect]
     Indication: ATRIAL FIBRILLATION
     Dosage: 200 MG TABLET/DOSE REGIMEN NOT PROVIDED; ORAL
     Route: 048
     Dates: start: 20050418, end: 20050507
  7. SECTRAL [Suspect]
     Indication: ATRIAL FLUTTER
     Dosage: 200 MG TABLET/DOSE REGIMEN NOT PROVIDED; ORAL
     Route: 048
     Dates: start: 20050418, end: 20050507
  8. KARDEGIC (ACETYLSALICYLATE LYSINE) [Concomitant]
  9. FUROSEMIDE [Concomitant]
  10. COVERSYL (PERINDOPRIL) [Concomitant]
  11. PREVISCAN (FLUINDIONE) [Concomitant]
  12. PRAVASTATIN [Concomitant]

REACTIONS (3)
  - BRADYCARDIA [None]
  - DRUG INTERACTION [None]
  - TACHYCARDIA [None]
